FAERS Safety Report 9773569 (Version 3)
Quarter: 2014Q1

REPORT INFORMATION
  Report Type: Spontaneous
  Country: DE (occurrence: None)
  Receive Date: 20131217
  Receipt Date: 20140306
  Transmission Date: 20141002
  Serious: Yes (Other)
  Sender: FDA-Public Use
  Company Number: 1312-1575

PATIENT
  Age: 93 Year
  Sex: Female

DRUGS (2)
  1. EYLEA [Suspect]
     Indication: AGE-RELATED MACULAR DEGENERATION
     Dates: start: 201311
  2. AZITHROMYCIN (AZITHROMYCIN) [Concomitant]

REACTIONS (1)
  - Retinal vein occlusion [None]
